FAERS Safety Report 18649018 (Version 3)
Quarter: 2021Q1

REPORT INFORMATION
  Report Type: Report from Study
  Country: DE (occurrence: DE)
  Receive Date: 20201222
  Receipt Date: 20210113
  Transmission Date: 20210419
  Serious: Yes (Hospitalization)
  Sender: FDA-Public Use
  Company Number: DE-EISAI MEDICAL RESEARCH-EC-2020-085601

PATIENT
  Age: 78 Year
  Sex: Female

DRUGS (19)
  1. PANTOZOL [Concomitant]
     Active Substance: PANTOPRAZOLE SODIUM
     Route: 065
     Dates: start: 20190902
  2. ONDANSETRON [Concomitant]
     Active Substance: ONDANSETRON
     Route: 065
     Dates: start: 20200204
  3. BIFITERAL [Concomitant]
     Active Substance: LACTULOSE
     Route: 065
     Dates: start: 20200224
  4. DORZOLAMIDE [Concomitant]
     Active Substance: DORZOLAMIDE
     Route: 065
     Dates: start: 201812
  5. BRIMONIDINE TARTRATE. [Concomitant]
     Active Substance: BRIMONIDINE TARTRATE
     Route: 065
     Dates: start: 201812
  6. CANDAXIRO [Concomitant]
     Route: 065
     Dates: start: 201812
  7. METOCLOPRAMIDE HYDROCHLORIDE. [Concomitant]
     Active Substance: METOCLOPRAMIDE HYDROCHLORIDE
     Route: 065
     Dates: start: 20200406
  8. ERBANTIL [Concomitant]
     Route: 065
     Dates: start: 20200831
  9. PEMBROLIZUMAB. [Suspect]
     Active Substance: PEMBROLIZUMAB
     Route: 042
     Dates: start: 20201123, end: 20201123
  10. IBUPROFEN. [Concomitant]
     Active Substance: IBUPROFEN
     Route: 065
     Dates: start: 20200113
  11. AMLODIPINE [Concomitant]
     Active Substance: AMLODIPINE BESYLATE
     Route: 065
     Dates: start: 20200811
  12. LOPERAMID [Concomitant]
     Active Substance: LOPERAMIDE
     Route: 065
     Dates: start: 20200831
  13. PEMBROLIZUMAB. [Suspect]
     Active Substance: PEMBROLIZUMAB
     Indication: HEPATOCELLULAR CARCINOMA
     Route: 042
     Dates: start: 20191223, end: 20201102
  14. BEPANTHEN [Concomitant]
     Route: 065
     Dates: start: 20200326
  15. L?THYROXIN [Concomitant]
     Active Substance: LEVOTHYROXINE SODIUM
     Route: 065
     Dates: start: 20200831
  16. TORSEMIDE. [Concomitant]
     Active Substance: TORSEMIDE
     Route: 065
     Dates: start: 20201123
  17. LENVATINIB [Suspect]
     Active Substance: LENVATINIB
     Indication: HEPATOCELLULAR CARCINOMA
     Dosage: STARTING DOSE AT 12 MG (BODY WEIGHT (BW) MORE THAN OR EQUAL TO 60 KG) OR 8 MG (BW LESS THAN 60 KG),
     Route: 048
     Dates: start: 20191223, end: 20201115
  18. LENVATINIB [Suspect]
     Active Substance: LENVATINIB
     Dosage: 4 MG (BODY WEIGHT (BW) MORE THAN OR EQUAL TO 60 KG) OR 8 MG (BW LESS THAN 60 KG)
     Route: 048
     Dates: start: 20201123
  19. CANDECOR [Concomitant]
     Active Substance: CANDESARTAN CILEXETIL
     Route: 065
     Dates: start: 20201123

REACTIONS (1)
  - Epistaxis [Recovered/Resolved]

NARRATIVE: CASE EVENT DATE: 20201211
